FAERS Safety Report 17871472 (Version 4)
Quarter: 2020Q3

REPORT INFORMATION
  Report Type: Spontaneous
  Country: US (occurrence: US)
  Receive Date: 20200608
  Receipt Date: 20200902
  Transmission Date: 20201103
  Serious: No
  Sender: FDA-Public Use
  Company Number: US-GLAXOSMITHKLINE-US2020AMR091548

PATIENT
  Sex: Female

DRUGS (3)
  1. ZEJULA [Suspect]
     Active Substance: NIRAPARIB
     Indication: UTERINE CANCER
     Dosage: 200 MG, QD
     Route: 065
     Dates: start: 20200501
  2. ZEJULA [Suspect]
     Active Substance: NIRAPARIB
     Dosage: 200 MG, QD
     Route: 048
  3. ZEJULA [Suspect]
     Active Substance: NIRAPARIB
     Dosage: 200 MG, QD

REACTIONS (14)
  - White blood cell count decreased [Unknown]
  - Arthralgia [Not Recovered/Not Resolved]
  - Off label use [Unknown]
  - Myalgia [Recovering/Resolving]
  - Product monitoring error [Unknown]
  - Skin discolouration [Unknown]
  - Hepatic steatosis [Unknown]
  - Skin disorder [Unknown]
  - Papule [Unknown]
  - Muscular weakness [Recovering/Resolving]
  - Product use in unapproved indication [Unknown]
  - Blood pressure increased [Unknown]
  - Muscle spasms [Unknown]
  - Arthralgia [Unknown]
